FAERS Safety Report 7309372-1 (Version None)
Quarter: 2011Q1

REPORT INFORMATION
  Report Type: 
  Country: None (occurrence: None)
  Receive Date: 20110223
  Receipt Date: 20110107
  Transmission Date: 20110831
  Serious: Yes (Life-Threatening, Hospitalization)
  Sender: FDA-Public Use
  Company Number: PHHO2011US01482

PATIENT
  Sex: Male

DRUGS (21)
  1. KLONOPIN [Concomitant]
  2. AVANDIA [Concomitant]
  3. COLACE [Concomitant]
  4. LOPRESSOR [Suspect]
  5. PRAVACHOL [Concomitant]
  6. FLONASE [Concomitant]
  7. SINGULAIR [Concomitant]
  8. CLONIDINE [Concomitant]
  9. PRILOSEC [Concomitant]
  10. HEPARIN [Concomitant]
  11. ACETAMINOPHEN AND HYDROCODONE BITARTRATE [Concomitant]
  12. DITROPAN XL [Concomitant]
  13. NEURONTIN [Concomitant]
  14. PLAVIX [Concomitant]
  15. COZAAR [Concomitant]
  16. SPIRIVA [Concomitant]
  17. PROZAC [Concomitant]
  18. NORPRAMIN [Concomitant]
  19. BENADRYL ^ACHE^ [Concomitant]
  20. ASPIRIN [Concomitant]
  21. AMARYL [Concomitant]

REACTIONS (6)
  - BRADYCARDIA [None]
  - ANAEMIA [None]
  - BUNDLE BRANCH BLOCK LEFT [None]
  - THROMBOCYTOPENIA [None]
  - POST PROCEDURAL HAEMORRHAGE [None]
  - ELECTROCARDIOGRAM QT PROLONGED [None]
